FAERS Safety Report 8623111-3 (Version None)
Quarter: 2012Q3

REPORT INFORMATION
  Report Type: 
  Country: None (occurrence: None)
  Receive Date: 20120827
  Receipt Date: 20120811
  Transmission Date: 20120928
  Serious: No
  Sender: FDA-Public Use
  Company Number: US-009507513-1207USA000816

PATIENT

DRUGS (6)
  1. PEGASYS [Suspect]
  2. SIMVASTATIN [Concomitant]
  3. PLAVIX [Concomitant]
  4. RIBAVIRIN [Suspect]
  5. LISINOPRIL AND HYDROCHLOROTHIAZIDE [Concomitant]
  6. VICTRELIS [Suspect]
     Dosage: 800 MG, TID
     Dates: start: 20120301, end: 20120510

REACTIONS (1)
  - ANAEMIA [None]
